FAERS Safety Report 25900785 (Version 1)
Quarter: 2025Q4

REPORT INFORMATION
  Report Type: Spontaneous
  Country: US (occurrence: US)
  Receive Date: 20251009
  Receipt Date: 20251009
  Transmission Date: 20260118
  Serious: No
  Sender: MYLAN
  Company Number: US-MYLANLABS-2025M1084728

PATIENT
  Age: 61 Year
  Sex: Female
  Weight: 43.09 kg

DRUGS (3)
  1. XANAX [Suspect]
     Active Substance: ALPRAZOLAM
     Indication: Anxiety
     Dosage: 0.5 MILLIGRAM, TID
  2. XANAX [Suspect]
     Active Substance: ALPRAZOLAM
     Indication: Panic attack
     Dosage: 0.5 MILLIGRAM, TID
     Dates: start: 20250909
  3. XANAX [Suspect]
     Active Substance: ALPRAZOLAM
     Indication: Vertigo

REACTIONS (2)
  - Drug ineffective [Unknown]
  - Off label use [Unknown]

NARRATIVE: CASE EVENT DATE: 20250909
